FAERS Safety Report 5591858-1 (Version None)
Quarter: 2008Q1

REPORT INFORMATION
  Report Type: 
  Country: None (occurrence: None)
  Receive Date: 20080115
  Receipt Date: 20080103
  Transmission Date: 20080703
  Serious: Yes (Other)
  Sender: FDA-Public Use
  Company Number: B0502651A

PATIENT

DRUGS (2)
  1. SEROXAT [Suspect]
     Dates: start: 20010101
  2. CIPRALEX [Concomitant]
     Dates: start: 20030101

REACTIONS (6)
  - AMNESIA [None]
  - ANGER [None]
  - DRUG WITHDRAWAL SYNDROME [None]
  - EMOTIONAL DISTRESS [None]
  - LOSS OF LIBIDO [None]
  - SUICIDAL IDEATION [None]
